FAERS Safety Report 6032044-0 (Version None)
Quarter: 2009Q1

REPORT INFORMATION
  Report Type: 
  Country: None (occurrence: None)
  Receive Date: 20090107
  Receipt Date: 20081223
  Transmission Date: 20090719
  Serious: Yes (Death)
  Sender: FDA-Public Use
  Company Number: 2008002365

PATIENT
  Age: 71 Year
  Sex: Male

DRUGS (9)
  1. TARCEVA [Suspect]
     Indication: LUNG NEOPLASM MALIGNANT
     Dosage: (150 MG), ORAL
     Route: 048
     Dates: start: 20050802
  2. CORTANCYL    (PREDNISONE) [Concomitant]
  3. POTASSIUM CHLORIDE [Concomitant]
  4. OMEPRAZOLE [Concomitant]
  5. MOCLAMINE         (MOCLOBEMIDE) [Concomitant]
  6. IMODIUM [Concomitant]
  7. CIPLATINE [Concomitant]
  8. GEMCITABINE [Concomitant]
  9. TAXOTERE [Concomitant]

REACTIONS (2)
  - DIARRHOEA [None]
  - SEPTIC SHOCK [None]
